FAERS Safety Report 4855915-7 (Version None)
Quarter: 2005Q4

REPORT INFORMATION
  Report Type: 
  Country: None (occurrence: None)
  Receive Date: 20051216
  Receipt Date: 20051121
  Transmission Date: 20060501
  Serious: Yes (Life-Threatening, Disabling, Other)
  Sender: FDA-Public Use
  Company Number: GB-GLAXOSMITHKLINE-B0401137A

PATIENT
  Age: 45 Year
  Sex: Female
  Weight: 126 kg

DRUGS (1)
  1. ZYBAN [Suspect]
     Indication: SMOKING CESSATION THERAPY
     Route: 048

REACTIONS (6)
  - AGGRESSION [None]
  - ANGINA PECTORIS [None]
  - DISTURBANCE IN ATTENTION [None]
  - DIZZINESS [None]
  - HEART RATE INCREASED [None]
  - PALPITATIONS [None]
